FAERS Safety Report 9753604 (Version 1)
Quarter: 2013Q4

REPORT INFORMATION
  Report Type: Spontaneous
  Country: US (occurrence: US)
  Receive Date: 20131213
  Receipt Date: 20131213
  Transmission Date: 20140711
  Serious: Yes (Hospitalization, Other)
  Sender: FDA-Public Use
  Company Number: US-BAYER-2013-147474

PATIENT
  Age: 19 Year
  Sex: Female

DRUGS (9)
  1. MOXIFLOXACIN IV [Suspect]
     Indication: INFECTIVE PULMONARY EXACERBATION OF CYSTIC FIBROSIS
     Dosage: UNK
     Route: 051
  2. AZITHROMYCIN [Concomitant]
     Route: 048
  3. BUDESONIDE W/FORMOTEROL FUMARATE [Concomitant]
     Indication: CYSTIC FIBROSIS
     Route: 055
  4. INSULIN [Concomitant]
     Indication: DIABETES MELLITUS
  5. TOBRAMYCIN [Concomitant]
  6. RIFAMPICIN [Concomitant]
     Indication: INFECTIVE PULMONARY EXACERBATION OF CYSTIC FIBROSIS
     Route: 051
  7. SULFAMETHOXAZOLE W/TRIMETHOPRIM [Concomitant]
     Indication: INFECTIVE PULMONARY EXACERBATION OF CYSTIC FIBROSIS
  8. CEFTAZIDIME [Concomitant]
  9. VANCOMYCIN [Concomitant]
     Indication: PNEUMONIA BACTERIAL

REACTIONS (5)
  - Pneumonia staphylococcal [Recovering/Resolving]
  - Acute respiratory distress syndrome [Recovering/Resolving]
  - Renal failure acute [Recovered/Resolved]
  - Drug ineffective [None]
  - Lung infiltration [Recovering/Resolving]
